FAERS Safety Report 16412259 (Version 2)
Quarter: 2019Q2

REPORT INFORMATION
  Report Type: Report from Study
  Country: DE (occurrence: DE)
  Receive Date: 20190610
  Receipt Date: 20190613
  Transmission Date: 20190711
  Serious: Yes (Hospitalization)
  Sender: FDA-Public Use
  Company Number: PHHY2019DE132158

PATIENT
  Sex: Male
  Weight: 75 kg

DRUGS (3)
  1. OMNITROPE [Suspect]
     Active Substance: SOMATROPIN
     Indication: GROWTH HORMONE DEFICIENCY
     Dosage: 0.8 MG, QD
     Route: 058
     Dates: start: 20190123
  2. L-THYROXIN [Concomitant]
     Active Substance: LEVOTHYROXINE SODIUM
     Dosage: 50 OT, QD
     Route: 048
     Dates: start: 20190329
  3. L-THYROXIN [Concomitant]
     Active Substance: LEVOTHYROXINE SODIUM
     Indication: SECONDARY HYPOTHYROIDISM
     Dosage: 87.5 OT, QD
     Route: 048
     Dates: start: 2015, end: 20190329

REACTIONS (4)
  - Renal failure [Recovered/Resolved]
  - Hyperthyroidism [Recovered/Resolved]
  - Adrenocortical insufficiency acute [Recovered/Resolved]
  - Dehydration [Recovered/Resolved]

NARRATIVE: CASE EVENT DATE: 20190329
